FAERS Safety Report 6816157-9 (Version None)
Quarter: 2010Q3

REPORT INFORMATION
  Report Type: 
  Country: None (occurrence: None)
  Receive Date: 20100702
  Receipt Date: 20100702
  Transmission Date: 20110219
  Serious: No
  Sender: FDA-Public Use
  Company Number: None

PATIENT
  Sex: Female
  Weight: 72.5755 kg

DRUGS (1)
  1. BUPROPION HCL [Suspect]
     Indication: ANXIETY
     Dosage: 1 PILL ONCE A DAY PO
     Route: 048
     Dates: start: 20100518, end: 20100701

REACTIONS (3)
  - CONDITION AGGRAVATED [None]
  - DRUG INEFFECTIVE [None]
  - PRODUCT SUBSTITUTION ISSUE [None]
